FAERS Safety Report 6488038-4 (Version None)
Quarter: 2009Q4

REPORT INFORMATION
  Report Type: 
  Country: None (occurrence: None)
  Receive Date: 20091210
  Receipt Date: 20091207
  Transmission Date: 20100525
  Serious: Yes (Death, Other)
  Sender: FDA-Public Use
  Company Number: PHHY2009BR53913

PATIENT
  Sex: Female

DRUGS (1)
  1. STALEVO 100 [Suspect]
     Indication: PARKINSON'S DISEASE
     Dosage: ONE TABLET (200/50/12.5 MG) IN THE MORNING, AFTERNOON AND NIGHT
     Route: 048

REACTIONS (3)
  - CARDIAC FAILURE [None]
  - HALLUCINATION, VISUAL [None]
  - MYOCARDIAL FIBROSIS [None]
